FAERS Safety Report 8972204 (Version 1)
Quarter: 2012Q4

REPORT INFORMATION
  Report Type: 
  Country: US (occurrence: None)
  Receive Date: 20121217
  Receipt Date: 20121217
  Transmission Date: 20130627
  Serious: Yes (Hospitalization)
  Sender: FDA-Public Use
  Company Number: None

PATIENT
  Sex: Female
  Weight: 68 kg

DRUGS (6)
  1. PACLITAXEL (TAXOL) [Suspect]
     Dates: end: 20120726
  2. IRON [Concomitant]
  3. JANUVIA [Concomitant]
  4. PRILOSEC [Concomitant]
  5. VITAMIN D [Concomitant]
  6. ATENOLOL [Concomitant]

REACTIONS (3)
  - Dysuria [None]
  - Diarrhoea [None]
  - Ureteric stenosis [None]
